FAERS Safety Report 8791764 (Version 3)
Quarter: 2013Q3

REPORT INFORMATION
  Report Type: Report from Study
  Country: JP (occurrence: JP)
  Receive Date: 20120918
  Receipt Date: 20130718
  Transmission Date: 20140515
  Serious: Yes (Hospitalization)
  Sender: FDA-Public Use
  Company Number: JP-009507513-1209JPN002684

PATIENT
  Age: 50 Year
  Sex: Male
  Weight: 87 kg

DRUGS (13)
  1. PEGINTRON [Suspect]
     Indication: CHRONIC HEPATITIS C
     Dosage: 1.5 MICROGRAM PER KILOGRAM, QW, DAILY DOSE UNKNOWN
     Route: 058
     Dates: start: 20120621, end: 20120725
  2. PEGINTRON [Suspect]
     Dosage: 1.15 MICROGRAM PER KILOGRAM, QW, DAILY DOSE UNKNOWN
     Route: 058
     Dates: start: 20120726, end: 20120731
  3. PEGINTRON [Suspect]
     Dosage: 0.92 MICROGRAM PER KILOGRAM, QW
     Route: 058
     Dates: start: 20120801, end: 20120807
  4. PEGINTRON [Suspect]
     Dosage: 0.69 MICROGRAM PER KILOGRAM, QW
     Route: 058
     Dates: start: 20120808
  5. REBETOL [Suspect]
     Indication: CHRONIC HEPATITIS C
     Dosage: 800 MG, QD
     Route: 048
     Dates: start: 20120621, end: 20120710
  6. REBETOL [Suspect]
     Dosage: 600 MG, QD
     Route: 048
     Dates: start: 20120711, end: 20120725
  7. REBETOL [Suspect]
     Dosage: 400 MG, QD
     Route: 048
     Dates: start: 20120726, end: 20120731
  8. REBETOL [Suspect]
     Dosage: 200 MG, QD
     Route: 048
     Dates: start: 20120801
  9. TELAVIC [Suspect]
     Indication: CHRONIC HEPATITIS C
     Dosage: 2250 MG, QD
     Route: 048
     Dates: start: 20120621, end: 20120808
  10. URSO [Concomitant]
     Indication: CHRONIC HEPATITIS C
     Dosage: 600 MG, QD, FORMULATION: POR
     Route: 048
     Dates: start: 20120621
  11. LOXONIN [Concomitant]
     Indication: PROPHYLAXIS
     Dosage: 60 MG/DAY, AS NEEDED, FORMULATION: POR
     Route: 048
     Dates: start: 20120621
  12. MUCOSTA [Concomitant]
     Indication: PROPHYLAXIS
     Dosage: 100 MG/DAY, AS NEEDED, FORMULATION: POR
     Route: 048
     Dates: start: 20120621
  13. BROTIZOLAM [Concomitant]
     Indication: PROPHYLAXIS
     Dosage: 0.25 MG/DAY, AS NEEDED, FORMULATION : POR
     Route: 048
     Dates: start: 20120621

REACTIONS (1)
  - Anaemia [Recovered/Resolved with Sequelae]
